FAERS Safety Report 9536344 (Version 1)
Quarter: 2013Q2

REPORT INFORMATION
  Report Type: Spontaneous
  Country: US (occurrence: None)
  Receive Date: 20130517
  Receipt Date: 20130517
  Transmission Date: 20140414
  Serious: Yes (Other)
  Sender: FDA-Public Use
  Company Number: 1000041879

PATIENT
  Age: 40 Year
  Sex: Male

DRUGS (1)
  1. VIIBRYD [Suspect]
     Dosage: 40 MG, (40 MG, 1 IN 1 D), ORAL
     Route: 048

REACTIONS (3)
  - Feeling abnormal [None]
  - Anxiety [None]
  - Discomfort [None]
